FAERS Safety Report 5661178-5 (Version None)
Quarter: 2008Q1

REPORT INFORMATION
  Report Type: 
  Country: None (occurrence: None)
  Receive Date: 20080312
  Receipt Date: 20080312
  Transmission Date: 20080703
  Serious: Yes (Death, Disabling, Other)
  Sender: FDA-Public Use
  Company Number: None

PATIENT
  Age: 59 Year
  Sex: Female
  Weight: 90.7194 kg

DRUGS (4)
  1. HEPARIN [Suspect]
     Indication: CARDIAC OPERATION
     Dosage: 4,000 UNITS 2,100 UNITS AN HOUR STANDARD
     Dates: start: 20061210
  2. HEPARIN [Suspect]
     Indication: INTRAVENOUS CATHETER MANAGEMENT
     Dosage: 4,000 UNITS 2,100 UNITS AN HOUR STANDARD
     Dates: start: 20061210
  3. HEPARIN [Suspect]
     Indication: CARDIAC OPERATION
     Dosage: 4,000 UNITS 2,100 UNITS AN HOUR STANDARD
     Dates: start: 20070225
  4. HEPARIN [Suspect]
     Indication: INTRAVENOUS CATHETER MANAGEMENT
     Dosage: 4,000 UNITS 2,100 UNITS AN HOUR STANDARD
     Dates: start: 20070225

REACTIONS (12)
  - CARDIAC FAILURE CONGESTIVE [None]
  - CYANOSIS [None]
  - DIZZINESS [None]
  - FALL [None]
  - FATIGUE [None]
  - HAEMODIALYSIS [None]
  - HEPARIN-INDUCED THROMBOCYTOPENIA [None]
  - NECROSIS [None]
  - PAIN IN EXTREMITY [None]
  - POSTOPERATIVE WOUND COMPLICATION [None]
  - PYREXIA [None]
  - RENAL FAILURE [None]
